FAERS Safety Report 15650463 (Version 3)
Quarter: 2018Q4

REPORT INFORMATION
  Report Type: Spontaneous
  Country: GB (occurrence: GB)
  Receive Date: 20181123
  Receipt Date: 20181130
  Transmission Date: 20190205
  Serious: No
  Sender: FDA-Public Use
  Company Number: GB-BAUSCH-BL-2018-032307

PATIENT
  Age: 2 Year
  Sex: Male

DRUGS (1)
  1. IPRATROPIUM BROMIDE. [Suspect]
     Active Substance: IPRATROPIUM BROMIDE
     Indication: ASTHMA
     Dosage: AEROSOL THROUGH A SPACER
     Route: 065

REACTIONS (1)
  - Pupils unequal [Recovered/Resolved]
